FAERS Safety Report 5943210-4 (Version None)
Quarter: 2008Q4

REPORT INFORMATION
  Report Type: 
  Country: None (occurrence: None)
  Receive Date: 20081106
  Receipt Date: 20081029
  Transmission Date: 20090506
  Serious: Yes (Other)
  Sender: FDA-Public Use
  Company Number: B0544042A

PATIENT
  Age: 83 Year
  Sex: Female

DRUGS (1)
  1. AUGMENTIN '125' [Suspect]
     Indication: PROPHYLAXIS
     Dosage: 2G SINGLE DOSE
     Route: 042
     Dates: start: 20081013, end: 20081013

REACTIONS (5)
  - BLOOD PRESSURE DECREASED [None]
  - PAINFUL RESPIRATION [None]
  - PRURITUS [None]
  - RASH GENERALISED [None]
  - VOMITING [None]
